FAERS Safety Report 4860860-7 (Version None)
Quarter: 2005Q4

REPORT INFORMATION
  Report Type: 
  Country: None (occurrence: None)
  Receive Date: 20051220
  Receipt Date: 20051209
  Transmission Date: 20060501
  Serious: Yes (Other)
  Sender: FDA-Public Use
  Company Number: CA-BRISTOL-MYERS SQUIBB COMPANY-13218714

PATIENT
  Age: 76 Year
  Sex: Female

DRUGS (7)
  1. TEQUIN [Suspect]
     Route: 042
  2. ALTACE [Concomitant]
  3. AVANDIA [Concomitant]
  4. COREG [Concomitant]
  5. DIABETA [Concomitant]
  6. QUESTRAN [Concomitant]
  7. QUININE [Concomitant]

REACTIONS (1)
  - HYPOGLYCAEMIA [None]
